FAERS Safety Report 8988754 (Version 3)
Quarter: 2013Q1

REPORT INFORMATION
  Report Type: Spontaneous
  Country: AT (occurrence: AT)
  Receive Date: 20121228
  Receipt Date: 20130312
  Transmission Date: 20140127
  Serious: Yes (Death, Other)
  Sender: FDA-Public Use
  Company Number: AT-BRISTOL-MYERS SQUIBB COMPANY-17226895

PATIENT
  Age: 63 Year
  Sex: Male
  Weight: 86 kg

DRUGS (2)
  1. YERVOY [Suspect]
     Indication: METASTATIC MALIGNANT MELANOMA
     Dosage: NO OD CYCLES:4?2G68944-EXP DATE: 29AUG2014
     Route: 042
     Dates: start: 20121203
  2. MARCOUMAR [Suspect]
     Indication: PULMONARY EMBOLISM

REACTIONS (2)
  - Malignant neoplasm progression [Fatal]
  - Tumour haemorrhage [Recovered/Resolved]
